FAERS Safety Report 25710627 (Version 1)
Quarter: 2025Q3

REPORT INFORMATION
  Report Type: Spontaneous
  Country: US (occurrence: None)
  Receive Date: 20250820
  Receipt Date: 20250820
  Transmission Date: 20251020
  Serious: Yes (Other)
  Sender: FDA-CTU
  Company Number: None

PATIENT
  Age: 35 Year
  Sex: Female

DRUGS (1)
  1. SIMLANDI [Suspect]
     Active Substance: ADALIMUMAB-RYVK
     Dosage: OTHER FREQUENCY : EVERY 2 WEEKS;?
     Route: 058

REACTIONS (8)
  - Somnambulism [None]
  - Road traffic accident [None]
  - Fatigue [None]
  - Night sweats [None]
  - Dry mouth [None]
  - Pain [None]
  - Fatigue [None]
  - Fibromyalgia [None]
